FAERS Safety Report 8353069-6 (Version None)
Quarter: 2012Q2

REPORT INFORMATION
  Report Type: 
  Country: None (occurrence: None)
  Receive Date: 20120511
  Receipt Date: 20120508
  Transmission Date: 20120825
  Serious: Yes (Hospitalization, Other)
  Sender: FDA-Public Use
  Company Number: US-PFIZER INC-2012112810

PATIENT
  Sex: Female
  Weight: 79.365 kg

DRUGS (7)
  1. LYRICA [Suspect]
     Indication: NEUROPATHY PERIPHERAL
     Dosage: 150 MG, 2X/DAY
  2. SIMVASTATIN [Concomitant]
     Indication: BLOOD CHOLESTEROL ABNORMAL
     Dosage: 40 MG, DAILY
  3. CALCITRIOL [Concomitant]
     Dosage: 0.25 UG, DAILY
  4. LYRICA [Suspect]
     Dosage: 75 MG, 2X/DAY
  5. SERTRALINE [Concomitant]
     Indication: DEPRESSION
     Dosage: 50 MG, DAILY
  6. INSULIN [Concomitant]
     Indication: DIABETES MELLITUS
     Dosage: UNK
  7. METHYLDOPA [Concomitant]
     Indication: BLOOD PRESSURE ABNORMAL
     Dosage: 250 MG, 2X/DAY

REACTIONS (8)
  - BLOOD CREATININE INCREASED [None]
  - MYOCARDIAL INFARCTION [None]
  - PAIN [None]
  - PARAESTHESIA [None]
  - GASTRITIS [None]
  - GLOMERULAR FILTRATION RATE ABNORMAL [None]
  - BURNING SENSATION [None]
  - RENAL DISORDER [None]
